FAERS Safety Report 5501369-7 (Version None)
Quarter: 2007Q4

REPORT INFORMATION
  Report Type: 
  Country: None (occurrence: None)
  Receive Date: 20071026
  Receipt Date: 20071010
  Transmission Date: 20080405
  Serious: Yes (Hospitalization)
  Sender: FDA-Public Use
  Company Number: 2007EU001833

PATIENT
  Age: 5 Year
  Sex: Female

DRUGS (2)
  1. PROGRAF [Suspect]
     Indication: RENAL TRANSPLANT
     Dosage: 1.4 MG, BID, ORAL
     Route: 048
     Dates: start: 20050303, end: 20070626
  2. ASPIRIN [Concomitant]

REACTIONS (3)
  - APLASTIC ANAEMIA [None]
  - BONE MARROW FAILURE [None]
  - HAEMATOTOXICITY [None]
